FAERS Safety Report 8585959-3 (Version None)
Quarter: 2012Q3

REPORT INFORMATION
  Report Type: 
  Country: None (occurrence: None)
  Receive Date: 20120810
  Receipt Date: 20120809
  Transmission Date: 20120928
  Serious: Yes (Hospitalization)
  Sender: FDA-Public Use
  Company Number: US-TEVA-346884USA

PATIENT
  Age: 48 Year
  Sex: Female

DRUGS (4)
  1. TREANDA [Suspect]
     Dates: start: 20120228, end: 20120621
  2. RITUXIMAB [Suspect]
     Indication: LYMPHOMA
     Dates: start: 20120228, end: 20120620
  3. TREANDA [Suspect]
     Dates: start: 20120719
  4. PEGFILGRASTIM [Concomitant]

REACTIONS (1)
  - EMBOLISM [None]
